FAERS Safety Report 9487244 (Version 1)
Quarter: 2013Q3

REPORT INFORMATION
  Report Type: Spontaneous
  Country: US (occurrence: US)
  Receive Date: 20130829
  Receipt Date: 20130829
  Transmission Date: 20140515
  Serious: No
  Sender: FDA-Public Use
  Company Number: US-009507513-1308USA009330

PATIENT
  Sex: Female

DRUGS (1)
  1. SYLATRON [Suspect]
     Indication: GENERAL SYMPTOM
     Dosage: 296 MICROGRAM, QW
     Dates: start: 20130703

REACTIONS (1)
  - Urticaria [Recovered/Resolved]
